FAERS Safety Report 8557532-4 (Version None)
Quarter: 2012Q3

REPORT INFORMATION
  Report Type: 
  Country: None (occurrence: None)
  Receive Date: 20120801
  Receipt Date: 20120727
  Transmission Date: 20120928
  Serious: Yes (Hospitalization, Other)
  Sender: FDA-Public Use
  Company Number: US-PFIZER INC-2012105223

PATIENT
  Sex: Female

DRUGS (3)
  1. CHANTIX [Suspect]
     Indication: SMOKING CESSATION THERAPY
     Dosage: STARTER PACK AND 1MG
     Dates: start: 20080701, end: 20080801
  2. EFFEXOR [Concomitant]
     Indication: DEPRESSION
     Dosage: UNK
     Dates: start: 20080101, end: 20110101
  3. LAMICTAL [Concomitant]
     Indication: PERSONALITY DISORDER
     Dosage: UNK
     Dates: start: 20080101

REACTIONS (10)
  - CONVULSION [None]
  - SUICIDE ATTEMPT [None]
  - PERSONALITY DISORDER [None]
  - INTENTIONAL OVERDOSE [None]
  - DEPRESSION [None]
  - SCAR [None]
  - INTENTIONAL SELF-INJURY [None]
  - ANXIETY [None]
  - MENTAL DISORDER [None]
  - AGGRESSION [None]
